FAERS Safety Report 8339843-0 (Version None)
Quarter: 2012Q2

REPORT INFORMATION
  Report Type: 
  Country: None (occurrence: None)
  Receive Date: 20120507
  Receipt Date: 20120501
  Transmission Date: 20120825
  Serious: Yes (Disabling, Other)
  Sender: FDA-Public Use
  Company Number: GB-PFIZER INC-2012090192

PATIENT
  Age: 32 Year
  Sex: Male
  Weight: 120 kg

DRUGS (7)
  1. LYRICA [Suspect]
     Dosage: 150 MG, 2X/DAY
  2. PARACETAMOL [Concomitant]
     Dosage: UNK
  3. DULOXETINE [Concomitant]
     Dosage: 60 MG, 1X/DAY
     Route: 048
  4. LYRICA [Suspect]
     Indication: NEURALGIA
     Dosage: 75 MG, 2X/DAY
  5. LYRICA [Suspect]
     Dosage: 225 MG, 2X/DAY
     Route: 048
     Dates: start: 20120319, end: 20120405
  6. CLONAZEPAM [Concomitant]
     Dosage: 500 UG, 1X/DAY
     Route: 048
     Dates: end: 20120405
  7. LYRICA [Suspect]
     Dosage: 100 MG, 2X/DAY

REACTIONS (8)
  - HYPERHIDROSIS [None]
  - WITHDRAWAL SYNDROME [None]
  - MOOD SWINGS [None]
  - SOCIAL AVOIDANT BEHAVIOUR [None]
  - SPEECH DISORDER [None]
  - DISTURBANCE IN ATTENTION [None]
  - SUICIDAL IDEATION [None]
  - ANGER [None]
